FAERS Safety Report 9350544 (Version 1)
Quarter: 2013Q2

REPORT INFORMATION
  Report Type: Spontaneous
  Country: US (occurrence: None)
  Receive Date: 20130613
  Receipt Date: 20130613
  Transmission Date: 20140414
  Serious: Yes (Other)
  Sender: FDA-Public Use
  Company Number: None

PATIENT
  Age: 60 Year
  Sex: Female
  Weight: 58.97 kg

DRUGS (1)
  1. COMBIVENT RESPIMAT 20MCG/100MCG BOEHRINGER INGELHEIM [Suspect]
     Dosage: USUAL PRESCRIBED DOSE. INHAL
     Route: 011

REACTIONS (2)
  - Candida infection [None]
  - Tongue discolouration [None]
